FAERS Safety Report 8024659-5 (Version None)
Quarter: 2012Q1

REPORT INFORMATION
  Report Type: 
  Country: None (occurrence: None)
  Receive Date: 20120103
  Receipt Date: 20111219
  Transmission Date: 20120608
  Serious: No
  Sender: FDA-Public Use
  Company Number: 2011SP059378

PATIENT
  Age: 58 Year
  Sex: Female

DRUGS (3)
  1. SYCREST (ASENAPINE /05706901/) (5 MG) [Suspect]
     Indication: MANIA
     Dosage: 5 MG;QD;SL
     Route: 060
     Dates: start: 20111213, end: 20111215
  2. LITHIUM [Concomitant]
  3. QUETIAPINE [Concomitant]

REACTIONS (3)
  - OFF LABEL USE [None]
  - HYPOTENSION [None]
  - EXTRAPYRAMIDAL DISORDER [None]
